FAERS Safety Report 25244407 (Version 1)
Quarter: 2025Q2

REPORT INFORMATION
  Report Type: Spontaneous
  Country: FR (occurrence: FR)
  Receive Date: 20250428
  Receipt Date: 20250428
  Transmission Date: 20250717
  Serious: Yes (Hospitalization, Other)
  Sender: ALKEM
  Company Number: FR-ALKEM LABORATORIES LIMITED-FR-ALKEM-2024-26131

PATIENT
  Age: 6 Year
  Sex: Female

DRUGS (1)
  1. SIROLIMUS [Suspect]
     Active Substance: SIROLIMUS
     Indication: Vascular malformation
     Route: 048

REACTIONS (1)
  - Pneumonia [Recovering/Resolving]
